FAERS Safety Report 21413879 (Version 1)
Quarter: 2022Q4

REPORT INFORMATION
  Report Type: Spontaneous
  Country: US (occurrence: US)
  Receive Date: 20221006
  Receipt Date: 20221006
  Transmission Date: 20230112
  Serious: Yes (Other)
  Sender: FDA-Public Use
  Company Number: US-ALIMERA SCIENCES INC.-US-A16013-22-000256

PATIENT
  Sex: Male

DRUGS (1)
  1. ILUVIEN [Suspect]
     Active Substance: FLUOCINOLONE ACETONIDE
     Indication: Product used for unknown indication
     Dosage: 0.25 MICROGRAM, QD- UNKNOWN EYE
     Route: 031

REACTIONS (3)
  - Vitreoretinal traction syndrome [Not Recovered/Not Resolved]
  - Retinal thickening [Not Recovered/Not Resolved]
  - Condition aggravated [Not Recovered/Not Resolved]
